FAERS Safety Report 8517538 (Version 2)
Quarter: 2014Q4

REPORT INFORMATION
  Report Type: Spontaneous
  Country: US (occurrence: US)
  Receive Date: 20120417
  Receipt Date: 20141224
  Transmission Date: 20150529
  Serious: No
  Sender: FDA-Public Use
  Company Number: US-ASTRAZENECA-2011SE63773

PATIENT
  Age: 21039 Day
  Sex: Male

DRUGS (1)
  1. NEXIUM [Suspect]
     Active Substance: ESOMEPRAZOLE MAGNESIUM
     Route: 048
     Dates: start: 20141111

REACTIONS (6)
  - Hiatus hernia [Unknown]
  - Insomnia [Unknown]
  - Drug dose omission [Unknown]
  - Feeling abnormal [Unknown]
  - Malaise [Unknown]
  - Dyspepsia [Unknown]
